FAERS Safety Report 14433451 (Version 1)
Quarter: 2018Q1

REPORT INFORMATION
  Report Type: Spontaneous
  Country: US (occurrence: US)
  Receive Date: 20180124
  Receipt Date: 20180124
  Transmission Date: 20180509
  Serious: Yes (Hospitalization)
  Sender: FDA-Public Use
  Company Number: US-PCCINC-T201701019

PATIENT

DRUGS (6)
  1. GABLOFEN [Suspect]
     Active Substance: BACLOFEN
     Dosage: 450 ?G, QD
     Route: 037
     Dates: start: 20160524, end: 20160525
  2. GABLOFEN [Suspect]
     Active Substance: BACLOFEN
     Dosage: 275 ?G, QD
     Route: 037
     Dates: start: 20160607, end: 20160621
  3. GABLOFEN [Suspect]
     Active Substance: BACLOFEN
     Indication: MUSCLE SPASTICITY
     Dosage: 500 ?G, QD
     Route: 037
     Dates: end: 20160524
  4. GABLOFEN [Suspect]
     Active Substance: BACLOFEN
     Dosage: 250 ?G, QD
     Route: 037
     Dates: start: 20160525, end: 20160528
  5. GABLOFEN [Suspect]
     Active Substance: BACLOFEN
     Dosage: UNK, QD
     Route: 037
     Dates: start: 20160621
  6. GABLOFEN [Suspect]
     Active Substance: BACLOFEN
     Dosage: 300 ?G, QD
     Route: 037
     Dates: start: 20160528, end: 20160607

REACTIONS (3)
  - Overdose [Recovered/Resolved]
  - Fatigue [Recovered/Resolved]
  - Hypersomnia [Recovered/Resolved]

NARRATIVE: CASE EVENT DATE: 20160528
